FAERS Safety Report 21585050 (Version 4)
Quarter: 2023Q1

REPORT INFORMATION
  Report Type: Report from Study
  Country: US (occurrence: US)
  Receive Date: 20221111
  Receipt Date: 20230328
  Transmission Date: 20230417
  Serious: Yes (Hospitalization, Disabling, Other)
  Sender: FDA-Public Use
  Company Number: US-002147023-NVSC2022US251763

PATIENT

DRUGS (1)
  1. KESIMPTA [Suspect]
     Active Substance: OFATUMUMAB
     Indication: Multiple sclerosis
     Dosage: UNK
     Route: 058
     Dates: start: 20220513

REACTIONS (6)
  - Joint injury [Unknown]
  - Fall [Unknown]
  - Incision site swelling [Unknown]
  - Headache [Unknown]
  - Cough [Unknown]
  - Sputum discoloured [Not Recovered/Not Resolved]
